FAERS Safety Report 5728046-1 (Version None)
Quarter: 2008Q2

REPORT INFORMATION
  Report Type: 
  Country: None (occurrence: None)
  Receive Date: 20080430
  Receipt Date: 20080415
  Transmission Date: 20081010
  Serious: Yes (Hospitalization)
  Sender: FDA-Public Use
  Company Number: 2008S1006397

PATIENT
  Age: 53 Year
  Sex: Female
  Weight: 49.8957 kg

DRUGS (6)
  1. HUMIRA [Suspect]
     Indication: RHEUMATOID ARTHRITIS
     Dosage: SUBCUTANEOUS
     Route: 058
     Dates: start: 20080306, end: 20080320
  2. METHOTREXATE [Suspect]
     Indication: RHEUMATOID ARTHRITIS
     Dosage: 12.5 MG, WEEKLY, ORAL
     Route: 048
     Dates: start: 20080306, end: 20080327
  3. IBUPROFEN TABLETS [Concomitant]
  4. QUETIAPINE FUMARATE [Concomitant]
  5. ACAMPROSATE [Concomitant]
  6. MULTI-VITAMIN [Concomitant]

REACTIONS (3)
  - PHARYNGOLARYNGEAL PAIN [None]
  - RASH [None]
  - STOMACH DISCOMFORT [None]
